FAERS Safety Report 8520907-3 (Version None)
Quarter: 2012Q3

REPORT INFORMATION
  Report Type: 
  Country: None (occurrence: None)
  Receive Date: 20120719
  Receipt Date: 20120709
  Transmission Date: 20120928
  Serious: Yes (Other)
  Sender: FDA-Public Use
  Company Number: US-JNJFOC-20120704500

PATIENT
  Age: 49 Year
  Sex: Female
  Weight: 63.5 kg

DRUGS (4)
  1. PROMETHAZINE [Concomitant]
     Indication: NAUSEA
     Route: 065
  2. NORFLEX [Concomitant]
     Indication: MUSCLE RELAXANT THERAPY
     Dosage: 1/3X A DAY
     Route: 065
  3. SUDAFED 12 HOUR [Suspect]
     Indication: MULTIPLE ALLERGIES
     Route: 048
  4. CHLORPHENIRAMINE MALEATE [Concomitant]
     Indication: MULTIPLE ALLERGIES
     Route: 065

REACTIONS (1)
  - RENAL FAILURE [None]
